FAERS Safety Report 25159781 (Version 1)
Quarter: 2025Q2

REPORT INFORMATION
  Report Type: Spontaneous
  Country: IN (occurrence: IN)
  Receive Date: 20250404
  Receipt Date: 20250404
  Transmission Date: 20250717
  Serious: Yes (Hospitalization, Other)
  Sender: EXELA PHARMA SCIENCES
  Company Number: IN-EXELAPHARMA-2025EXLA00034

PATIENT
  Age: 85 Year
  Sex: Female

DRUGS (9)
  1. DILTIAZEM HYDROCHLORIDE [Suspect]
     Active Substance: DILTIAZEM HYDROCHLORIDE
     Indication: Atrial fibrillation
     Dates: start: 202101
  2. DILTIAZEM HYDROCHLORIDE [Suspect]
     Active Substance: DILTIAZEM HYDROCHLORIDE
     Dates: start: 202211
  3. DILTIAZEM HYDROCHLORIDE [Suspect]
     Active Substance: DILTIAZEM HYDROCHLORIDE
     Dates: start: 202305, end: 202310
  4. Norfloxacin-tinidazole [Concomitant]
  5. Fluid resuscitation [Concomitant]
  6. BROMOCRIPTINE [Concomitant]
     Active Substance: BROMOCRIPTINE
     Route: 048
     Dates: start: 202310, end: 202310
  7. CARBIDOPA\LEVODOPA [Concomitant]
     Active Substance: CARBIDOPA\LEVODOPA
     Dates: start: 202310, end: 202311
  8. OLANZAPINE [Concomitant]
     Active Substance: OLANZAPINE
     Dates: start: 202310, end: 202312
  9. APIXABAN [Concomitant]
     Active Substance: APIXABAN
     Route: 048
     Dates: start: 202310

REACTIONS (6)
  - Delirium [Recovering/Resolving]
  - Confusional state [Recovering/Resolving]
  - Aggression [Recovering/Resolving]
  - Speech disorder [Recovered/Resolved]
  - Hallucination, visual [Recovering/Resolving]
  - Persecutory delusion [Recovering/Resolving]
